FAERS Safety Report 9733599 (Version 2)
Quarter: 2013Q4

REPORT INFORMATION
  Report Type: Spontaneous
  Country: ES (occurrence: ES)
  Receive Date: 20131205
  Receipt Date: 20131209
  Transmission Date: 20140711
  Serious: Yes (Other)
  Sender: FDA-Public Use
  Company Number: ES-VIIV HEALTHCARE LIMITED-B0950128A

PATIENT
  Age: 44 Year
  Sex: Female

DRUGS (2)
  1. KIVEXA [Suspect]
     Indication: HIV INFECTION
     Route: 048
     Dates: start: 20131116, end: 201311
  2. TRUVADA [Concomitant]
     Route: 065

REACTIONS (6)
  - Laryngeal oedema [Recovering/Resolving]
  - Hypersensitivity [Unknown]
  - Malaise [Recovering/Resolving]
  - Dizziness [Recovering/Resolving]
  - Respiratory disorder [Recovering/Resolving]
  - Rash [Recovering/Resolving]
